FAERS Safety Report 9140307 (Version 1)
Quarter: 2013Q1

REPORT INFORMATION
  Report Type: Other
  Country: US (occurrence: US)
  Receive Date: 20130305
  Receipt Date: 20130305
  Transmission Date: 20140127
  Serious: Yes (Hospitalization)
  Sender: FDA-Public Use
  Company Number: US-BRISTOL-MYERS SQUIBB COMPANY-17432543

PATIENT
  Age: 54 Year
  Sex: Male
  Weight: 102 kg

DRUGS (3)
  1. METFORMIN HCL [Suspect]
     Indication: TYPE 2 DIABETES MELLITUS
  2. GLIMEPIRIDE [Concomitant]
     Indication: TYPE 2 DIABETES MELLITUS
  3. EXENATIDE [Concomitant]
     Indication: GLYCOSYLATED HAEMOGLOBIN INCREASED

REACTIONS (2)
  - Pancreatic carcinoma [Unknown]
  - Pancreatic insufficiency [Unknown]
